FAERS Safety Report 7376155-6 (Version None)
Quarter: 2011Q1

REPORT INFORMATION
  Report Type: 
  Country: None (occurrence: None)
  Receive Date: 20110315
  Receipt Date: 20110308
  Transmission Date: 20110831
  Serious: Yes (Death, Hospitalization)
  Sender: FDA-Public Use
  Company Number: WAES 1101USA03631

PATIENT
  Age: 71 Year
  Sex: Female
  Weight: 44.9061 kg

DRUGS (15)
  1. CEFEPIME [Concomitant]
  2. NYSTATIN [Concomitant]
  3. PROCHLORPERAZINE [Concomitant]
  4. INFUSION (FORM) CARFILZOMIB 45 MG [Suspect]
     Indication: DIFFUSE LARGE B-CELL LYMPHOMA
     Dosage: 30 MG, DAILY, IV
     Route: 042
     Dates: start: 20110125, end: 20110126
  5. INFUSION (FORM) CARFILZOMIB 45 MG [Suspect]
     Indication: DIFFUSE LARGE B-CELL LYMPHOMA
     Dosage: 30 MG, DAILY, IV
     Route: 042
     Dates: start: 20110208, end: 20110209
  6. NORVASC [Concomitant]
  7. HYDRALAZINE [Concomitant]
  8. TETRACYCLINE [Concomitant]
  9. LEVOTHYROXINE SODIUM [Concomitant]
  10. ALLOPURINOL [Concomitant]
  11. CAP VORINOSTAT 100 MG [Suspect]
     Indication: DIFFUSE LARGE B-CELL LYMPHOMA
     Dosage: 200 MG/BID/PO
     Route: 048
     Dates: start: 20110125, end: 20110127
  12. CAP VORINOSTAT 100 MG [Suspect]
     Indication: DIFFUSE LARGE B-CELL LYMPHOMA RECURRENT
     Dosage: 200 MG/BID/PO
     Route: 048
     Dates: start: 20110125, end: 20110127
  13. CAP VORINOSTAT 100 MG [Suspect]
     Indication: DIFFUSE LARGE B-CELL LYMPHOMA
     Dosage: 200 MG/BID/PO
     Route: 048
     Dates: start: 20110208, end: 20110210
  14. CAP VORINOSTAT 100 MG [Suspect]
     Indication: DIFFUSE LARGE B-CELL LYMPHOMA RECURRENT
     Dosage: 200 MG/BID/PO
     Route: 048
     Dates: start: 20110208, end: 20110210
  15. METOPROLOL [Concomitant]

REACTIONS (4)
  - PNEUMONIA [None]
  - FLUID OVERLOAD [None]
  - HYPONATRAEMIA [None]
  - ASPERGILLOSIS [None]
